FAERS Safety Report 18801205 (Version 1)
Quarter: 2021Q1

REPORT INFORMATION
  Report Type: Spontaneous
  Country: None (occurrence: US)
  Receive Date: 20210128
  Receipt Date: 20210128
  Transmission Date: 20210419
  Serious: Yes (Other)
  Sender: FDA-Public Use
  Company Number: US-STANDARD HOMEOPATHIC COMPANY-2105980

PATIENT
  Age: 24 Month
  Sex: Female

DRUGS (1)
  1. NIGHTTIME COLD N COUGH 4 KIDS [Suspect]
     Active Substance: HOMEOPATHICS
     Indication: GINGIVAL PAIN
     Route: 048
     Dates: start: 20210110, end: 20210110

REACTIONS (3)
  - Psychomotor hyperactivity [Unknown]
  - Logorrhoea [Unknown]
  - Tachycardia [Unknown]

NARRATIVE: CASE EVENT DATE: 20210117
